FAERS Safety Report 5192020-7 (Version None)
Quarter: 2006Q4

REPORT INFORMATION
  Report Type: 
  Country: None (occurrence: None)
  Receive Date: 20061220
  Receipt Date: 20061208
  Transmission Date: 20070319
  Serious: Yes (Other)
  Sender: FDA-Public Use
  Company Number: 15340

PATIENT
  Age: 65 Year
  Sex: Female

DRUGS (6)
  1. DEXAMETHASONE [Suspect]
     Indication: MULTIPLE MYELOMA
  2. VINCRISTINE [Suspect]
     Indication: MULTIPLE MYELOMA
  3. MELPHALAN [Suspect]
     Indication: MULTIPLE MYELOMA
  4. ZOLEDRONATE [Suspect]
     Indication: MULTIPLE MYELOMA
     Dosage: 4 MG MONTHLY IV
     Route: 042
  5. ADRIAMYCIN PFS [Suspect]
     Indication: MULTIPLE MYELOMA
  6. PREDNISONE TAB [Suspect]
     Indication: MULTIPLE MYELOMA

REACTIONS (3)
  - IMPAIRED HEALING [None]
  - OSTEONECROSIS [None]
  - PAIN [None]
